FAERS Safety Report 5257568-5 (Version None)
Quarter: 2007Q1

REPORT INFORMATION
  Report Type: 
  Country: None (occurrence: None)
  Receive Date: 20070307
  Receipt Date: 20060918
  Transmission Date: 20070707
  Serious: No
  Sender: FDA-Public Use
  Company Number: US-GLAXOSMITHKLINE-A0620547A

PATIENT
  Age: 72 Year
  Sex: Female

DRUGS (3)
  1. REQUIP [Suspect]
     Indication: RESTLESS LEGS SYNDROME
     Dosage: 1MG PER DAY
     Route: 048
     Dates: start: 20060501
  2. TENORMIN [Concomitant]
  3. DARVOCET [Concomitant]

REACTIONS (2)
  - ILL-DEFINED DISORDER [None]
  - RESTLESS LEGS SYNDROME [None]
